FAERS Safety Report 9860966 (Version 2)
Quarter: 2014Q1

REPORT INFORMATION
  Report Type: Spontaneous
  Country: GB (occurrence: GB)
  Receive Date: 20140202
  Receipt Date: 20140202
  Transmission Date: 20141002
  Serious: No
  Sender: FDA-Public Use
  Company Number: GB-ALLERGAN-1302535US

PATIENT
  Age: 54 Year
  Sex: Female

DRUGS (3)
  1. BOTOX [Suspect]
     Indication: SKIN WRINKLING
     Dosage: UNK UNK, SINGLE
     Dates: start: 20121016, end: 20121016
  2. BOTOX [Suspect]
     Indication: SKIN WRINKLING
  3. JUVEDERM [Suspect]
     Indication: PRODUCT USED FOR UNKNOWN INDICATION
     Dosage: 0.55 ML, SINGLE

REACTIONS (1)
  - Injection site reaction [Not Recovered/Not Resolved]
